FAERS Safety Report 5844828-X (Version None)
Quarter: 2008Q3

REPORT INFORMATION
  Report Type: 
  Country: None (occurrence: None)
  Receive Date: 20080814
  Receipt Date: 20080805
  Transmission Date: 20090109
  Serious: Yes (Other)
  Sender: FDA-Public Use
  Company Number: US-WYE-H05402408

PATIENT
  Sex: Female
  Weight: 52 kg

DRUGS (11)
  1. TORISEL [Suspect]
     Indication: RENAL CELL CARCINOMA
     Route: 042
     Dates: start: 20080205
  2. ATENOLOL [Concomitant]
     Route: 048
  3. GUAIFENESIN [Concomitant]
     Route: 048
  4. TRIAMTERENE AND HYDROCHLOROTHIAZIDE [Concomitant]
     Dosage: 75/50 (1/2 TABLET) DAILY
     Route: 048
  5. LEVOTHYROXINE SODIUM [Concomitant]
     Dosage: 125 MCG DAILY
     Route: 048
  6. LORAZEPAM [Concomitant]
     Dosage: .5 MG (1/2 TABLET) PRN
     Route: 048
  7. ONDANSETRON [Concomitant]
     Dosage: 1/2 TABLET PRN
     Route: 048
  8. POTASSIUM CHLORIDE [Concomitant]
     Route: 048
  9. ASCORBIC ACID [Concomitant]
     Route: 048
  10. IRON [Concomitant]
     Route: 048
  11. IRON [Concomitant]
     Route: 042

REACTIONS (1)
  - LHERMITTE'S SIGN [None]
